FAERS Safety Report 17841573 (Version 1)
Quarter: 2020Q2

REPORT INFORMATION
  Report Type: Spontaneous
  Country: CA (occurrence: CA)
  Receive Date: 20200529
  Receipt Date: 20200529
  Transmission Date: 20200714
  Serious: Yes (Other)
  Sender: FDA-Public Use
  Company Number: CA-TEVA-2020-CA-1241393

PATIENT
  Age: 56 Year
  Sex: Female
  Weight: 56 kg

DRUGS (4)
  1. PACLITAXEL. [Suspect]
     Active Substance: PACLITAXEL
     Indication: BREAST CANCER
     Dosage: LIQUID INTRAVENOUS, 1 DOSAGE FORM , 1 EVERY 1 WEEK
     Route: 042
  2. DIPHENHYDRAMINE. [Concomitant]
     Active Substance: DIPHENHYDRAMINE
  3. FAMOTIDINE. [Concomitant]
     Active Substance: FAMOTIDINE
  4. DEXAMETHASONE. [Concomitant]
     Active Substance: DEXAMETHASONE

REACTIONS (4)
  - Back pain [Unknown]
  - Erythema [Unknown]
  - Product quality issue [Unknown]
  - Chest discomfort [Unknown]
